FAERS Safety Report 5491575-2 (Version None)
Quarter: 2007Q4

REPORT INFORMATION
  Report Type: 
  Country: None (occurrence: None)
  Receive Date: 20071019
  Receipt Date: 20071019
  Transmission Date: 20080405
  Serious: Yes (Other)
  Sender: FDA-Public Use
  Company Number: None

PATIENT
  Age: 73 Year
  Sex: Female

DRUGS (9)
  1. MACRODANTIN [Suspect]
     Dates: end: 20050317
  2. TOPROL-XL [Concomitant]
  3. ATACAND [Concomitant]
  4. ALLEGRA [Concomitant]
  5. FLONASE [Concomitant]
  6. ALLOPURINOL [Concomitant]
  7. NEXIUM [Concomitant]
  8. ZOCOR [Concomitant]
  9. ZETIA [Concomitant]

REACTIONS (12)
  - ANTINUCLEAR ANTIBODY POSITIVE [None]
  - BIOPSY LIVER ABNORMAL [None]
  - CHRONIC HEPATITIS [None]
  - DRUG TOXICITY [None]
  - DYSPNOEA [None]
  - HEPATIC FIBROSIS [None]
  - HEPATIC NECROSIS [None]
  - HEPATITIS ACUTE [None]
  - HEPATOTOXICITY [None]
  - LIVER DISORDER [None]
  - LIVER INJURY [None]
  - URINARY TRACT INFECTION [None]
